FAERS Safety Report 7997461-8 (Version None)
Quarter: 2011Q4

REPORT INFORMATION
  Report Type: 
  Country: None (occurrence: None)
  Receive Date: 20111221
  Receipt Date: 20111215
  Transmission Date: 20120403
  Serious: Yes (Other)
  Sender: FDA-Public Use
  Company Number: CA-PFIZER INC-2011306499

PATIENT
  Age: 64 Year
  Sex: Female

DRUGS (8)
  1. IRINOTECAN HCL [Interacting]
     Dosage: UNK
  2. ETIDRONATE DISODIUM [Concomitant]
     Dosage: 1 TABLET DAILY
  3. CALCIUM CARBONATE [Concomitant]
     Dosage: 1 TABLET DAILY
  4. PHENYTOIN [Suspect]
     Dosage: 200 MG, 3X/DAY
     Route: 048
  5. DOCUSATE SODIUM [Concomitant]
     Dosage: 100 MG, 2X/DAY
  6. FLUOROURACIL [Interacting]
     Indication: CHEMOTHERAPY
     Dosage: UNK
  7. VENLAFAXINE [Concomitant]
     Dosage: 112.5 MG, 1X/DAY
  8. LEUCOVORIN CALCIUM [Interacting]
     Dosage: UNK

REACTIONS (7)
  - HYPERREFLEXIA [None]
  - TOXICITY TO VARIOUS AGENTS [None]
  - ATAXIA [None]
  - DRUG INTERACTION [None]
  - ANTICONVULSANT DRUG LEVEL INCREASED [None]
  - DIZZINESS [None]
  - SOMNOLENCE [None]
